FAERS Safety Report 9328206 (Version 1)
Quarter: 2013Q2

REPORT INFORMATION
  Report Type: Spontaneous
  Country: US (occurrence: US)
  Receive Date: 20130604
  Receipt Date: 20130604
  Transmission Date: 20140414
  Serious: No
  Sender: FDA-Public Use
  Company Number: US-SANOFI-AVENTIS-2012SA038248

PATIENT
  Age: 75 Year
  Sex: Female
  Weight: 114.3 kg

DRUGS (9)
  1. LANTUS [Suspect]
     Indication: TYPE 2 DIABETES MELLITUS
     Route: 058
     Dates: end: 2011
  2. SINGULAIR [Concomitant]
     Indication: HYPERSENSITIVITY
  3. LISINOPRIL [Concomitant]
     Indication: BLOOD PRESSURE
  4. MELOXICAM [Concomitant]
     Indication: ARTHRITIS
  5. CARVEDILOL [Concomitant]
     Indication: BLOOD PRESSURE
  6. ATORVASTATIN [Concomitant]
     Indication: BLOOD CHOLESTEROL INCREASED
  7. VALSARTAN [Concomitant]
     Indication: BLOOD PRESSURE
  8. ASPIRIN [Concomitant]
     Indication: THROMBOSIS PROPHYLAXIS
  9. HUMALOG [Concomitant]
     Indication: DIABETES MELLITUS

REACTIONS (1)
  - Visual acuity reduced [Unknown]
